FAERS Safety Report 6991625-8 (Version None)
Quarter: 2010Q3

REPORT INFORMATION
  Report Type: 
  Country: None (occurrence: None)
  Receive Date: 20100917
  Receipt Date: 20100910
  Transmission Date: 20110219
  Serious: No
  Sender: FDA-Public Use
  Company Number: 2009BI035370

PATIENT
  Age: 50 Year
  Sex: Male

DRUGS (1)
  1. TYSABRI [Suspect]
     Indication: MULTIPLE SCLEROSIS
     Route: 042
     Dates: start: 20090925

REACTIONS (5)
  - BALANCE DISORDER [None]
  - DRY EYE [None]
  - FALL [None]
  - HEADACHE [None]
  - TEMPERATURE INTOLERANCE [None]
